FAERS Safety Report 5128396-6 (Version None)
Quarter: 2006Q4

REPORT INFORMATION
  Report Type: 
  Country: None (occurrence: None)
  Receive Date: 20061011
  Receipt Date: 20060919
  Transmission Date: 20070319
  Serious: Yes (Other)
  Sender: FDA-Public Use
  Company Number: US200610000071

PATIENT
  Age: 87 Year
  Sex: Female

DRUGS (2)
  1. FORTEO [Suspect]
     Dates: start: 20040101
  2. FORTEO [Concomitant]

REACTIONS (2)
  - HIP SURGERY [None]
  - PHARMACEUTICAL PRODUCT COMPLAINT [None]
